FAERS Safety Report 12189676 (Version 5)
Quarter: 2020Q2

REPORT INFORMATION
  Report Type: Report from Study
  Country: US (occurrence: US)
  Receive Date: 20160318
  Receipt Date: 20200522
  Transmission Date: 20200713
  Serious: Yes (Other)
  Sender: FDA-Public Use
  Company Number: PHHY2016US032550

PATIENT
  Age: 45 Year
  Sex: Male

DRUGS (1)
  1. GILENYA [Suspect]
     Active Substance: FINGOLIMOD HYDROCHLORIDE
     Indication: MULTIPLE SCLEROSIS
     Dosage: UNK, QD
     Route: 048

REACTIONS (8)
  - Neurogenic bladder [Not Recovered/Not Resolved]
  - Glaucoma [Not Recovered/Not Resolved]
  - Nail infection [Recovered/Resolved]
  - Multiple sclerosis relapse [Recovered/Resolved]
  - Lymphocyte count decreased [Not Recovered/Not Resolved]
  - Bursitis [Not Recovered/Not Resolved]
  - White blood cell count decreased [Unknown]
  - Trigeminal neuralgia [Recovered/Resolved]

NARRATIVE: CASE EVENT DATE: 20151218
